FAERS Safety Report 22536995 (Version 2)
Quarter: 2023Q2

REPORT INFORMATION
  Report Type: Spontaneous
  Country: ES (occurrence: ES)
  Receive Date: 20230608
  Receipt Date: 20230622
  Transmission Date: 20230721
  Serious: Yes (Other)
  Sender: FDA-Public Use
  Company Number: ES-TEVA-2023-ES-2894203

PATIENT
  Age: 50 Year
  Sex: Male

DRUGS (3)
  1. SILDENAFIL CITRATE [Suspect]
     Active Substance: SILDENAFIL CITRATE
     Indication: Erectile dysfunction
     Dosage: 800 MILLIGRAM DAILY;
     Route: 048
  2. VARDENAFIL HYDROCHLORIDE [Suspect]
     Active Substance: VARDENAFIL HYDROCHLORIDE
     Indication: Erectile dysfunction
     Dosage: 600 MILLIGRAM DAILY;
     Route: 048
  3. TADALAFIL [Suspect]
     Active Substance: TADALAFIL
     Indication: Erectile dysfunction
     Route: 048

REACTIONS (4)
  - Retinal disorder [Recovered/Resolved]
  - Visual impairment [Recovered/Resolved]
  - Intentional overdose [Unknown]
  - Intentional product misuse [Unknown]
